FAERS Safety Report 5718841-7 (Version None)
Quarter: 2008Q2

REPORT INFORMATION
  Report Type: 
  Country: None (occurrence: None)
  Receive Date: 20080425
  Receipt Date: 20080414
  Transmission Date: 20081010
  Serious: Yes (Disabling, Other)
  Sender: FDA-Public Use
  Company Number: CL-PFIZER INC-2008034533

PATIENT
  Sex: Female

DRUGS (4)
  1. CHAMPIX [Suspect]
     Indication: SMOKING CESSATION THERAPY
  2. LEXAPRO [Concomitant]
     Indication: DEPRESSION
  3. CLONEX [Concomitant]
  4. ACCUPRIL [Concomitant]

REACTIONS (1)
  - DEPRESSION [None]
